FAERS Safety Report 5071885-3 (Version None)
Quarter: 2006Q3

REPORT INFORMATION
  Report Type: 
  Country: None (occurrence: None)
  Receive Date: 20060804
  Receipt Date: 20060802
  Transmission Date: 20061208
  Serious: Yes (Hospitalization)
  Sender: FDA-Public Use
  Company Number: US-BOEHRINGER INGELHEIM PHARMACEUTICALS, INC.-2006-BP-08892BP

PATIENT
  Age: 90 Year
  Sex: Female

DRUGS (1)
  1. MIRAPEX [Suspect]
     Indication: RESTLESS LEGS SYNDROME
     Route: 048

REACTIONS (3)
  - DRUG INEFFECTIVE [None]
  - HIATUS HERNIA [None]
  - INTESTINAL HAEMORRHAGE [None]
